FAERS Safety Report 4437611-3 (Version None)
Quarter: 2004Q3

REPORT INFORMATION
  Report Type: 
  Country: None (occurrence: None)
  Receive Date: 20040827
  Receipt Date: 20040819
  Transmission Date: 20050211
  Serious: Yes (Hospitalization)
  Sender: FDA-Public Use
  Company Number: 2004229367FR

PATIENT
  Age: 85 Year
  Sex: Female

DRUGS (7)
  1. SOMAC (PANTOPRAZOLE) TABLET [Suspect]
     Dosage: DF, PRN, ORAL
     Route: 048
     Dates: start: 20040706, end: 20040712
  2. DELTA-CORTEF [Suspect]
     Dosage: SOME DF, PRN, ORAL
     Route: 048
     Dates: start: 20040705, end: 20040711
  3. MAXAIR [Concomitant]
  4. SEREVENT [Concomitant]
  5. PULMICORT [Concomitant]
  6. SEREVENT [Concomitant]
  7. VERAPAMIL [Concomitant]

REACTIONS (2)
  - HYPONATRAEMIA [None]
  - SUBILEUS [None]
